FAERS Safety Report 12110027 (Version 1)
Quarter: 2016Q1

REPORT INFORMATION
  Report Type: Spontaneous
  Country: US (occurrence: None)
  Receive Date: 20160223
  Receipt Date: 20160223
  Transmission Date: 20160526
  Serious: Yes (Other)
  Sender: FDA-Public Use
  Company Number: None

PATIENT
  Age: 24 Year
  Sex: Male

DRUGS (1)
  1. TRUVADA [Suspect]
     Active Substance: EMTRICITABINE\TENOFOVIR DISOPROXIL FUMARATE
     Dosage: 200-300MG ORAL DAILY
     Route: 048
     Dates: start: 20160220

REACTIONS (2)
  - Paraesthesia [None]
  - Initial insomnia [None]

NARRATIVE: CASE EVENT DATE: 20160220
